FAERS Safety Report 19046550 (Version 1)
Quarter: 2021Q1

REPORT INFORMATION
  Report Type: Spontaneous
  Country: AU (occurrence: AU)
  Receive Date: 20210323
  Receipt Date: 20210323
  Transmission Date: 20210420
  Serious: Yes (Other)
  Sender: FDA-Public Use
  Company Number: AU-IPSEN BIOPHARMACEUTICALS, INC.-2021-07314

PATIENT

DRUGS (1)
  1. BOTULINUM TOXIN TYPE A [Suspect]
     Active Substance: BOTULINUM TOXIN TYPE A
     Indication: PRODUCT USED FOR UNKNOWN INDICATION
     Dosage: DOSE NOT REPORTED
     Route: 065

REACTIONS (8)
  - Seizure [Unknown]
  - Retching [Unknown]
  - Vomiting [Unknown]
  - Administration site rash [Unknown]
  - Asthenia [Unknown]
  - Pyrexia [Unknown]
  - Administration site bruise [Unknown]
  - Constipation [Unknown]
